FAERS Safety Report 6542997-X (Version None)
Quarter: 2010Q1

REPORT INFORMATION
  Report Type: 
  Country: None (occurrence: None)
  Receive Date: 20100120
  Receipt Date: 20100112
  Transmission Date: 20100710
  Serious: Yes (Death, Hospitalization, Other)
  Sender: FDA-Public Use
  Company Number: US-ROCHE-679164

PATIENT
  Sex: Female
  Weight: 68 kg

DRUGS (5)
  1. XELODA [Suspect]
     Indication: BREAST CANCER
     Route: 065
     Dates: end: 20090330
  2. TYKERB [Suspect]
     Indication: BREAST CANCER
     Route: 048
     Dates: end: 20090330
  3. ZOMETA [Concomitant]
  4. PROCRIT [Concomitant]
  5. DEXTROPROPOXYPHENE [Concomitant]
     Dosage: DRUG: DEXTROPROPOXYPHENE HCL

REACTIONS (23)
  - ABDOMINAL DISTENSION [None]
  - ABDOMINAL MASS [None]
  - ARTHRALGIA [None]
  - ASCITES [None]
  - BACK PAIN [None]
  - BLOOD PRESSURE INCREASED [None]
  - CARDIOPULMONARY FAILURE [None]
  - CONSTIPATION [None]
  - DECREASED APPETITE [None]
  - FEELING ABNORMAL [None]
  - GLOSSODYNIA [None]
  - HEADACHE [None]
  - JOINT SWELLING [None]
  - MALIGNANT NEOPLASM PROGRESSION [None]
  - MEDIASTINAL MASS [None]
  - METASTASES TO BONE [None]
  - METASTASES TO LIVER [None]
  - NAUSEA [None]
  - OEDEMA PERIPHERAL [None]
  - ORAL FUNGAL INFECTION [None]
  - PAIN [None]
  - SWELLING FACE [None]
  - TONGUE DISCOLOURATION [None]
